FAERS Safety Report 11572155 (Version 5)
Quarter: 2015Q4

REPORT INFORMATION
  Report Type: Report from Study
  Country: US (occurrence: US)
  Receive Date: 20150929
  Receipt Date: 20151215
  Transmission Date: 20160304
  Serious: Yes (Death, Hospitalization, Other)
  Sender: FDA-Public Use
  Company Number: US-BAYER-2015-414518

PATIENT
  Age: 59 Year
  Sex: Male
  Weight: 68 kg

DRUGS (15)
  1. ULTRACET [Concomitant]
     Active Substance: ACETAMINOPHEN\TRAMADOL HYDROCHLORIDE
  2. LEVEMIR [Concomitant]
     Active Substance: INSULIN DETEMIR
     Indication: DIABETES MELLITUS
     Dosage: 30 MG, QD
     Dates: start: 20150805
  3. AMLODIPINE [Concomitant]
     Active Substance: AMLODIPINE BESYLATE
  4. CHLORPROMAZINE. [Concomitant]
     Active Substance: CHLORPROMAZINE
  5. DICYCLOMINE HCL [Concomitant]
     Active Substance: DICYCLOMINE HYDROCHLORIDE
  6. FUROSEMIDE [FUROSEMIDE] [Concomitant]
     Active Substance: FUROSEMIDE
     Indication: OEDEMA
     Dosage: 20 MG, QD
     Dates: start: 20150805
  7. SPIRONOLACTONE. [Concomitant]
     Active Substance: SPIRONOLACTONE
     Indication: OEDEMA
     Dosage: 50 MG, QD
     Dates: start: 20150805
  8. BENICAR [Concomitant]
     Active Substance: OLMESARTAN MEDOXOMIL
  9. LACTULOSE. [Concomitant]
     Active Substance: LACTULOSE
     Indication: AMMONIA INCREASED
     Dosage: 45 ML, QD
     Dates: start: 20150824
  10. MEPHYTON [Concomitant]
     Active Substance: PHYTONADIONE
     Indication: HAEMORRHAGE
  11. PROCHLORPERAZ [Concomitant]
     Active Substance: PROCHLORPERAZINE MALEATE
     Indication: NAUSEA
     Dosage: UNK UNK, QD
     Dates: start: 20150805
  12. METOPROLOL [Concomitant]
     Active Substance: METOPROLOL
     Indication: HYPERTENSION
     Dosage: 25 MG, QD
     Dates: start: 20151023
  13. NEXAVAR [Suspect]
     Active Substance: SORAFENIB
     Indication: HEPATIC CANCER
     Dosage: 200 MG, BID
     Route: 048
     Dates: start: 201508
  14. MEPHYTON [Concomitant]
     Active Substance: PHYTONADIONE
     Indication: VITAMIN K DECREASED
     Dosage: 5 MG, QD
     Dates: start: 20151001
  15. PANTOPRAZOLE SODIUM. [Concomitant]
     Active Substance: PANTOPRAZOLE SODIUM
     Indication: GASTROOESOPHAGEAL REFLUX DISEASE
     Dosage: 40 MG, QD
     Dates: start: 20150805

REACTIONS (27)
  - Metastases to peritoneum [None]
  - Metastases to lung [None]
  - Asthenia [None]
  - Blood potassium increased [None]
  - Tongue ulceration [None]
  - Vomiting [Fatal]
  - Rash [None]
  - Fluid retention [Fatal]
  - Ascites [None]
  - Confusional state [Not Recovered/Not Resolved]
  - Muscular weakness [None]
  - Nausea [Not Recovered/Not Resolved]
  - Hiccups [Recovered/Resolved]
  - Therapy cessation [None]
  - Chromaturia [None]
  - Ammonia increased [Recovered/Resolved]
  - Oral pain [None]
  - Device malfunction [Fatal]
  - Renal failure [None]
  - Ammonia increased [Not Recovered/Not Resolved]
  - Vomiting [None]
  - Metastases to lymph nodes [None]
  - Fatigue [None]
  - Penile swelling [Unknown]
  - Swelling [Recovering/Resolving]
  - Thrombocytopenia [None]
  - Weight decreased [Not Recovered/Not Resolved]

NARRATIVE: CASE EVENT DATE: 20150805
